FAERS Safety Report 11523439 (Version 1)
Quarter: 2015Q3

REPORT INFORMATION
  Report Type: Spontaneous
  Country: US (occurrence: US)
  Receive Date: 20150918
  Receipt Date: 20150918
  Transmission Date: 20151125
  Serious: Yes (Other)
  Sender: FDA-Public Use
  Company Number: US-TAKEDA-TPA2011A05910

PATIENT

DRUGS (3)
  1. ACTOS [Suspect]
     Active Substance: PIOGLITAZONE HYDROCHLORIDE
     Indication: TYPE 2 DIABETES MELLITUS
     Dates: start: 20100623, end: 20110509
  2. METFORMIN [Concomitant]
     Active Substance: METFORMIN HYDROCHLORIDE
     Dates: start: 200902, end: 201105
  3. JANUVIA [Concomitant]
     Active Substance: SITAGLIPTIN PHOSPHATE
     Dates: start: 201011, end: 201105

REACTIONS (6)
  - Bladder cancer [Unknown]
  - Erectile dysfunction [Unknown]
  - Haematuria [Unknown]
  - Bladder spasm [Unknown]
  - Urinary incontinence [Unknown]
  - Depression [Unknown]

NARRATIVE: CASE EVENT DATE: 20110124
